FAERS Safety Report 5839051-9 (Version None)
Quarter: 2008Q3

REPORT INFORMATION
  Report Type: 
  Country: None (occurrence: None)
  Receive Date: 20080808
  Receipt Date: 20080724
  Transmission Date: 20090109
  Serious: Yes (Death)
  Sender: FDA-Public Use
  Company Number: MX-GENENTECH-264434

PATIENT
  Sex: Female
  Weight: 88 kg

DRUGS (5)
  1. TRASTUZUMAB [Suspect]
     Indication: BREAST CANCER
     Dosage: 8 MG/KG, SINGLE
     Route: 042
  2. TRASTUZUMAB [Suspect]
     Dosage: 6 MG/KG, Q3W
     Dates: start: 20031121, end: 20041116
  3. CAPTOPRIL [Concomitant]
     Indication: DRUG USE FOR UNKNOWN INDICATION
     Dosage: UNK
     Dates: start: 19970101, end: 20080501
  4. METOPROLOL SUCCINATE [Concomitant]
     Indication: DRUG USE FOR UNKNOWN INDICATION
     Dosage: UNK
     Dates: start: 20031114, end: 20080501
  5. HYDROCHLOROTHIAZIDE [Concomitant]
     Indication: DRUG USE FOR UNKNOWN INDICATION
     Dosage: UNK
     Dates: start: 20050127, end: 20080501

REACTIONS (2)
  - ACUTE MYOCARDIAL INFARCTION [None]
  - VENTRICULAR FIBRILLATION [None]
